FAERS Safety Report 4404339-5 (Version None)
Quarter: 2004Q3

REPORT INFORMATION
  Report Type: 
  Country: None (occurrence: None)
  Receive Date: 20040714
  Receipt Date: 20040701
  Transmission Date: 20050211
  Serious: Yes (Hospitalization)
  Sender: FDA-Public Use
  Company Number: 601367

PATIENT
  Age: 60 Year
  Sex: Male

DRUGS (3)
  1. POLYGAM S/D [Suspect]
     Indication: HYPOGAMMAGLOBULINAEMIA
     Dosage: 50 GM; ONCE; INTRAVENOUIS
     Route: 042
     Dates: start: 20030509, end: 20030509
  2. ADVAIR DISKUS 100/50 [Concomitant]
  3. COMBIVENT [Concomitant]

REACTIONS (1)
  - MYOCARDIAL INFARCTION [None]
